FAERS Safety Report 8961654 (Version 2)
Quarter: 2013Q1

REPORT INFORMATION
  Report Type: Report from Study
  Country: JP (occurrence: JP)
  Receive Date: 20121213
  Receipt Date: 20130130
  Transmission Date: 20140127
  Serious: Yes (Disabling)
  Sender: FDA-Public Use
  Company Number: JP-SANOFI-AVENTIS-2012SA089540

PATIENT
  Age: 84 Year
  Sex: Male
  Weight: 50 kg

DRUGS (12)
  1. PLAVIX [Suspect]
     Indication: CEREBRAL INFARCTION
     Route: 048
     Dates: start: 20120513
  2. NOVASTAN [Concomitant]
     Indication: CEREBRAL INFARCTION
     Dosage: DOSE: 30 MG/10 MG?STRENGTH: 10 MG/2ML
     Route: 042
     Dates: start: 20120512, end: 20120518
  3. RADICUT [Concomitant]
     Indication: CEREBRAL INFARCTION
     Route: 042
     Dates: start: 20120512, end: 20120525
  4. AMLODIPINE BESILATE/CANDESARTAN CILEXETIL [Concomitant]
     Indication: CEREBRAL INFARCTION
     Route: 048
     Dates: start: 20120513, end: 20120806
  5. SITAGLIPTIN PHOSPHATE [Concomitant]
     Indication: CEREBRAL INFARCTION
     Route: 048
     Dates: start: 20120513, end: 20120815
  6. TAKEPRON [Concomitant]
     Indication: PROPHYLAXIS
     Route: 048
     Dates: start: 20120513, end: 20120815
  7. ALLOPURINOL [Concomitant]
     Indication: CEREBRAL INFARCTION
     Route: 048
     Dates: start: 20120513, end: 20120611
  8. LIPITOR /UNK/ [Concomitant]
     Indication: CEREBRAL INFARCTION
     Route: 048
     Dates: start: 20120513, end: 20120611
  9. RISPERDAL [Concomitant]
     Indication: CEREBRAL INFARCTION
     Route: 048
     Dates: start: 20120518, end: 20120611
  10. GRAMALIL [Concomitant]
     Indication: CEREBRAL INFARCTION
     Route: 048
     Dates: start: 20120514, end: 20120806
  11. MEMANTINE HYDROCHLORIDE [Concomitant]
     Route: 048
     Dates: start: 20120518, end: 20120704
  12. REMINYL /UNK/ [Concomitant]
     Route: 048
     Dates: start: 20120518, end: 20120815

REACTIONS (1)
  - Dementia [Not Recovered/Not Resolved]
